FAERS Safety Report 5299218-8 (Version None)
Quarter: 2007Q2

REPORT INFORMATION
  Report Type: 
  Country: None (occurrence: None)
  Receive Date: 20070417
  Receipt Date: 20070410
  Transmission Date: 20071010
  Serious: Yes (Hospitalization)
  Sender: FDA-Public Use
  Company Number: FR-JNJFOC-20070401769

PATIENT
  Age: 84 Year
  Sex: Male

DRUGS (9)
  1. TAVANIC [Suspect]
     Indication: BRONCHITIS
     Route: 048
     Dates: start: 20070214, end: 20070218
  2. PREVISCAN [Interacting]
     Route: 048
  3. PREVISCAN [Interacting]
     Indication: PROPHYLAXIS
     Route: 048
  4. ESIDRIX [Concomitant]
     Route: 048
  5. LASIX [Concomitant]
     Route: 048
  6. NITRODERM [Concomitant]
     Route: 061
  7. TRIATEC [Concomitant]
     Route: 048
  8. ELISOR [Concomitant]
     Route: 065
  9. STILNOX [Concomitant]
     Route: 065

REACTIONS (3)
  - DRUG INTERACTION [None]
  - IRON DEFICIENCY ANAEMIA [None]
  - PROTHROMBIN TIME RATIO DECREASED [None]
